FAERS Safety Report 14313310 (Version 2)
Quarter: 2017Q4

REPORT INFORMATION
  Report Type: Spontaneous
  Country: US (occurrence: US)
  Receive Date: 20171221
  Receipt Date: 20171229
  Transmission Date: 20180321
  Serious: Yes (Death, Hospitalization)
  Sender: FDA-Public Use
  Company Number: US-UNITED THERAPEUTICS-UNT-2017-017799

PATIENT
  Age: 72 Year
  Sex: Male
  Weight: 61.22 kg

DRUGS (1)
  1. REMODULIN [Suspect]
     Active Substance: TREPROSTINIL
     Indication: PULMONARY ARTERIAL HYPERTENSION
     Dosage: 0.18 ?G/KG, CONTINUING
     Route: 041
     Dates: start: 20140220

REACTIONS (3)
  - Oedema [Unknown]
  - Fluid overload [Unknown]
  - Death [Fatal]

NARRATIVE: CASE EVENT DATE: 20171226
